FAERS Safety Report 13590002 (Version 1)
Quarter: 2017Q2

REPORT INFORMATION
  Report Type: Spontaneous
  Country: US (occurrence: US)
  Receive Date: 20170528
  Receipt Date: 20170528
  Transmission Date: 20170830
  Serious: Yes (Life-Threatening, Hospitalization)
  Sender: FDA-Public Use
  Company Number: None

PATIENT
  Age: 26 Year
  Sex: Female
  Weight: 63 kg

DRUGS (2)
  1. KETOROLAC [Suspect]
     Active Substance: KETOROLAC\KETOROLAC TROMETHAMINE
     Indication: BACK PAIN
     Dates: start: 20170525
  2. BUPIVACAINE. [Suspect]
     Active Substance: BUPIVACAINE
     Dates: start: 20170525

REACTIONS (3)
  - Bacteraemia [None]
  - Product contamination microbial [None]
  - Inadequate aseptic technique in use of product [None]

NARRATIVE: CASE EVENT DATE: 20170525
